FAERS Safety Report 5878291-X (Version None)
Quarter: 2008Q3

REPORT INFORMATION
  Report Type: 
  Country: None (occurrence: None)
  Receive Date: 20080911
  Receipt Date: 20080903
  Transmission Date: 20090109
  Serious: Yes (Death, Other)
  Sender: FDA-Public Use
  Company Number: TR-PFIZER INC-2008074015

PATIENT
  Sex: Female

DRUGS (1)
  1. OXYTETRACYCLINE [Suspect]
     Indication: PERICARDIAL EFFUSION MALIGNANT

REACTIONS (2)
  - BRONCHIAL FISTULA [None]
  - RESPIRATORY ARREST [None]
